FAERS Safety Report 9136648 (Version 1)
Quarter: 2013Q1

REPORT INFORMATION
  Report Type: Report from Study
  Country: US (occurrence: US)
  Receive Date: 20130304
  Receipt Date: 20130304
  Transmission Date: 20140127
  Serious: No
  Sender: FDA-Public Use
  Company Number: US-ABBOTT-12P-163-0939535-00

PATIENT
  Sex: Male
  Weight: 131.66 kg

DRUGS (4)
  1. ANDROGEL [Suspect]
     Indication: ANDROGEN DEFICIENCY
     Dosage: 1 PACKET
     Dates: start: 2009, end: 2012
  2. ANDROGEL [Suspect]
     Dates: start: 2012, end: 201203
  3. CPAP [Concomitant]
     Indication: SLEEP APNOEA SYNDROME
  4. LORAZEPAM [Concomitant]
     Indication: POOR QUALITY SLEEP

REACTIONS (4)
  - Muscular weakness [Not Recovered/Not Resolved]
  - Asthenia [Recovered/Resolved]
  - Asthenia [Not Recovered/Not Resolved]
  - Fatigue [Not Recovered/Not Resolved]
